FAERS Safety Report 7381129-5 (Version None)
Quarter: 2011Q1

REPORT INFORMATION
  Report Type: 
  Country: None (occurrence: None)
  Receive Date: 20110329
  Receipt Date: 20101206
  Transmission Date: 20110831
  Serious: No
  Sender: FDA-Public Use
  Company Number: US-AMGEN-USASP2010008298

PATIENT
  Sex: Female

DRUGS (2)
  1. SENSIPAR [Suspect]
     Dosage: 60 MG, UNK
  2. SENSIPAR [Suspect]
     Indication: HYPERPARATHYROIDISM SECONDARY
     Dosage: 30 MG, UNK

REACTIONS (2)
  - NAUSEA [None]
  - VOMITING [None]
